FAERS Safety Report 6707189-X (Version None)
Quarter: 2010Q2

REPORT INFORMATION
  Report Type: 
  Country: None (occurrence: None)
  Receive Date: 20100503
  Receipt Date: 20091022
  Transmission Date: 20101027
  Serious: No
  Sender: FDA-Public Use
  Company Number: US-ASTRAZENECA-2009SE21869

PATIENT
  Age: 67 Year
  Sex: Female
  Weight: 79.4 kg

DRUGS (6)
  1. NEXIUM [Suspect]
     Route: 048
  2. SIMVASTATIN [Concomitant]
  3. JANUMIT [Concomitant]
  4. FOLBIC [Concomitant]
  5. AVALIDE [Concomitant]
  6. TOPROL-XL [Concomitant]

REACTIONS (3)
  - ABDOMINAL PAIN UPPER [None]
  - DIARRHOEA [None]
  - DRUG DOSE OMISSION [None]
